FAERS Safety Report 7520836-8 (Version None)
Quarter: 2011Q2

REPORT INFORMATION
  Report Type: 
  Country: None (occurrence: None)
  Receive Date: 20110603
  Receipt Date: 20100507
  Transmission Date: 20111010
  Serious: Yes (Hospitalization, Other)
  Sender: FDA-Public Use
  Company Number: US-BAYER-201011765NA

PATIENT
  Age: 27 Year
  Sex: Female
  Weight: 91 kg

DRUGS (27)
  1. YASMIN [Suspect]
     Route: 048
     Dates: start: 20070718, end: 20071231
  2. LEVAQUIN [Concomitant]
  3. AMOXICILLIN [Concomitant]
  4. FERROUS SULFATE TAB [Concomitant]
  5. PROMETHAZINE [Concomitant]
  6. YASMIN [Suspect]
     Indication: PREMENSTRUAL SYNDROME
     Route: 048
     Dates: start: 20060907, end: 20061222
  7. LORAZEPAM [Concomitant]
  8. DURADRIN [Concomitant]
  9. CELEXA [Concomitant]
  10. YASMIN [Suspect]
     Indication: CONTRACEPTION
     Route: 048
     Dates: start: 20060418, end: 20060501
  11. YASMIN [Suspect]
     Indication: MENSTRUAL CYCLE MANAGEMENT
     Route: 048
     Dates: start: 20060728, end: 20060801
  12. RISPERDAL [Concomitant]
  13. HYDROCODONE BITARTRATE [Concomitant]
  14. CYCLOBENZAPRINE [Concomitant]
  15. OXYCODONE HCL [Concomitant]
  16. MEDROXYPROGESTERONE [Concomitant]
  17. CITALOPRAM HYDROBROMIDE [Concomitant]
  18. CIPROFLOXACIN [Concomitant]
  19. MULTI-VITAMIN [Concomitant]
  20. PRILOSEC [Concomitant]
  21. DEPAKOTE ER [Concomitant]
  22. PERCOCET [Concomitant]
     Indication: PAIN
  23. REPLIVA [Concomitant]
  24. MULTI-VITAMINS [Concomitant]
  25. IOPHEN-C [Concomitant]
  26. IRON SUPPLEMENT [Concomitant]
  27. TRILEPTAL [Concomitant]

REACTIONS (5)
  - CHOLECYSTITIS CHRONIC [None]
  - CHOLELITHIASIS [None]
  - DYSPEPSIA [None]
  - HAEMATEMESIS [None]
  - VOMITING [None]
